FAERS Safety Report 9396593 (Version 3)
Quarter: 2013Q3

REPORT INFORMATION
  Report Type: Spontaneous
  Country: US (occurrence: US)
  Receive Date: 20130711
  Receipt Date: 20130814
  Transmission Date: 20140515
  Serious: No
  Sender: FDA-Public Use
  Company Number: US-PFIZER INC-2013203232

PATIENT
  Age: 68 Year
  Sex: Male
  Weight: 82 kg

DRUGS (5)
  1. CHANTIX [Suspect]
     Indication: SMOKING CESSATION THERAPY
     Dosage: 5 MG, DAILY
     Dates: start: 20130628, end: 20130630
  2. CHANTIX [Suspect]
     Dosage: 5 MG, 2X/DAY
     Dates: start: 20130701, end: 20130702
  3. CHANTIX [Suspect]
     Dosage: UNK
     Dates: start: 20130703, end: 20130704
  4. LISINOPRIL [Concomitant]
     Indication: BLOOD PRESSURE ABNORMAL
     Dosage: UNK
  5. AMLODIPINE BESILATE [Concomitant]
     Dosage: UNK, 1X/DAY

REACTIONS (4)
  - Vision blurred [Recovering/Resolving]
  - Anxiety [Recovering/Resolving]
  - Constipation [Recovering/Resolving]
  - Tremor [Recovered/Resolved]
